FAERS Safety Report 5073504-9 (Version None)
Quarter: 2006Q3

REPORT INFORMATION
  Report Type: 
  Country: None (occurrence: None)
  Receive Date: 20060717
  Receipt Date: 20051121
  Transmission Date: 20061208
  Serious: No
  Sender: FDA-Public Use
  Company Number: 2005002266

PATIENT
  Age: 82 Year
  Sex: Male

DRUGS (7)
  1. TARCEVA [Suspect]
     Indication: NON-SMALL CELL LUNG CANCER
     Dosage: 150 MG (QD), ORAL
     Route: 048
  2. ASCORBIC ACID [Concomitant]
  3. TUMS (CALCIUM CARBONATE) [Concomitant]
  4. ZINC [Concomitant]
  5. COREG [Concomitant]
  6. XANAX [Concomitant]
  7. LIDOCAINE S/S [Concomitant]

REACTIONS (19)
  - BACK PAIN [None]
  - BURNING SENSATION MUCOSAL [None]
  - CHEST DISCOMFORT [None]
  - CONJUNCTIVITIS [None]
  - DIARRHOEA [None]
  - DRY SKIN [None]
  - DYSPHAGIA [None]
  - EPISTAXIS [None]
  - FUNGAL INFECTION [None]
  - INSOMNIA [None]
  - MUSCULOSKELETAL CHEST PAIN [None]
  - NASAL OEDEMA [None]
  - PAIN OF SKIN [None]
  - RASH [None]
  - SKIN EXFOLIATION [None]
  - SUNBURN [None]
  - SWELLING FACE [None]
  - VISUAL DISTURBANCE [None]
  - WEIGHT DECREASED [None]
